FAERS Safety Report 9182214 (Version 1)
Quarter: 2012Q4

REPORT INFORMATION
  Report Type: 
  Country: US (occurrence: US)
  Receive Date: 20121030
  Receipt Date: 20121030
  Transmission Date: 20130627
  Serious: No
  Sender: FDA-Public Use
  Company Number: US-GLAXOSMITHKLINE-A0952349A

PATIENT
  Age: 78 Year
  Sex: Female

DRUGS (6)
  1. SEREVENT [Suspect]
     Indication: ASTHMA
     Dosage: 1PUFF Twice per day
     Route: 055
     Dates: start: 201005
  2. COMBIVENT [Suspect]
     Indication: PRODUCT USED FOR UNKNOWN INDICATION
     Route: 065
  3. TOPROL XL [Concomitant]
  4. HYDROCHLOROTHIAZIDE [Concomitant]
  5. SERTRALINE HYDROCHLORIDE [Concomitant]
  6. XANAX [Concomitant]

REACTIONS (3)
  - Sleep disorder [Not Recovered/Not Resolved]
  - Drug interaction [Unknown]
  - Drug administration error [Unknown]
